FAERS Safety Report 10684859 (Version 1)
Quarter: 2014Q4

REPORT INFORMATION
  Report Type: Spontaneous
  Country: FR (occurrence: None)
  Receive Date: 20141229
  Receipt Date: 20141229
  Transmission Date: 20150529
  Serious: Yes (Hospitalization)
  Sender: FDA-Public Use
  Company Number: 2669612

PATIENT
  Age: 81 Year
  Sex: Female

DRUGS (5)
  1. (GEMCITABINE HYDROCHLORIDE) [Suspect]
     Active Substance: GEMCITABINE HYDROCHLORIDE
     Indication: PRODUCT USED FOR UNKNOWN INDICATION
     Dosage: 1130 MG MILLIGRAM(S), CYCLICAL, INTRAVENOUS (NOT OTHERWISE SPECIFIED)
     Route: 042
     Dates: start: 20140901
  2. [OXALIPLATIN} [Suspect]
     Active Substance: OXALIPLATIN
     Indication: CHOLANGIOCARCINOMA
     Dosage: 99 MG MILLIGRAM(S), 1 DAY,  INTRAVENOUS (NOT
     Route: 042
     Dates: start: 20140901
  3. (EUPANTOL) [Concomitant]
  4. (METHYLPREDNISOLONE) [Concomitant]
     Active Substance: METHYLPREDNISOLONE
  5. (ZOPHREN) [Concomitant]

REACTIONS (17)
  - Blood alkaline phosphatase increased [None]
  - Staphylococcal infection [None]
  - Blood bilirubin increased [None]
  - Alanine aminotransferase increased [None]
  - Anaemia megaloblastic [None]
  - Aspartate aminotransferase increased [None]
  - Bilirubin conjugated increased [None]
  - Blood fibrinogen decreased [None]
  - Disseminated intravascular coagulation [None]
  - Thrombocytopenia [None]
  - Cyanosis [None]
  - Fibrin D dimer increased [None]
  - Histiocytosis haematophagic [None]
  - Peripheral ischaemia [None]
  - Anaemia [None]
  - Haptoglobin decreased [None]
  - Haemolysis [None]

NARRATIVE: CASE EVENT DATE: 20141026
